FAERS Safety Report 9255847 (Version 2)
Quarter: 2013Q2

REPORT INFORMATION
  Report Type: Spontaneous
  Country: US (occurrence: US)
  Receive Date: 20130425
  Receipt Date: 20130607
  Transmission Date: 20140414
  Serious: Yes (Other)
  Sender: FDA-Public Use
  Company Number: US-PFIZER INC-2013127794

PATIENT
  Age: 66 Year
  Sex: Female
  Weight: 90.7 kg

DRUGS (5)
  1. LEVOXYL [Suspect]
     Indication: THYROID HORMONE REPLACEMENT THERAPY
     Dosage: 150 UG, 1X/DAY
     Dates: start: 1993
  2. XANAX [Concomitant]
     Indication: ANXIETY
     Dosage: 20 MG, 1X/DAY
  3. METFORMIN [Concomitant]
     Indication: DIABETES MELLITUS
     Dosage: 1000 MG, 1X/DAY
  4. TYLENOL-CODEINE [Concomitant]
     Dosage: UNK, EVERY 4 HOURS
  5. GABAPENTIN [Concomitant]
     Dosage: 300 MG, 3X/DAY

REACTIONS (1)
  - Sepsis [Unknown]
